FAERS Safety Report 17297369 (Version 2)
Quarter: 2020Q1

REPORT INFORMATION
  Report Type: Spontaneous
  Country: US (occurrence: US)
  Receive Date: 20200122
  Receipt Date: 20200122
  Transmission Date: 20200409
  Serious: Yes (Hospitalization, Other)
  Sender: FDA-Public Use
  Company Number: US-SHIRE-US202001574

PATIENT
  Sex: Female

DRUGS (1)
  1. AGRYLIN [Suspect]
     Active Substance: ANAGRELIDE HYDROCHLORIDE
     Indication: ESSENTIAL THROMBOCYTHAEMIA
     Dosage: 1.5 MILLIGRAM, 2X/DAY:BID
     Route: 065
     Dates: start: 20190909

REACTIONS (5)
  - Inappropriate schedule of product administration [Unknown]
  - Cerebrovascular accident [Unknown]
  - Product availability issue [Unknown]
  - Platelet count abnormal [Unknown]
  - Transient ischaemic attack [Unknown]
